FAERS Safety Report 7456533-7 (Version None)
Quarter: 2011Q2

REPORT INFORMATION
  Report Type: 
  Country: None (occurrence: None)
  Receive Date: 20110503
  Receipt Date: 20110419
  Transmission Date: 20111010
  Serious: No
  Sender: FDA-Public Use
  Company Number: US-ENDO PHARMACEUTICALS INC.-METO20110659

PATIENT
  Sex: Male

DRUGS (1)
  1. METOCLOPRAMIDE HYDROCHLORIDE [Suspect]
     Indication: GASTROINTESTINAL DISORDER
     Dosage: UNK
     Route: 048

REACTIONS (5)
  - URINARY TRACT DISORDER [None]
  - VERTIGO [None]
  - DRUG EFFECT DECREASED [None]
  - HAEMATURIA [None]
  - ABDOMINAL PAIN UPPER [None]
